FAERS Safety Report 10524645 (Version 1)
Quarter: 2014Q4

REPORT INFORMATION
  Report Type: Spontaneous
  Country: PT (occurrence: None)
  Receive Date: 20141010
  Receipt Date: 20141010
  Transmission Date: 20150528
  Serious: Yes (Life-Threatening)
  Sender: FDA-Public Use
  Company Number: 2564681

PATIENT
  Age: 31 Year
  Sex: Male

DRUGS (22)
  1. MEROPENEM. [Suspect]
     Active Substance: MEROPENEM
     Indication: SEPSIS
     Dosage: 1 DAY
     Route: 042
     Dates: start: 20140808, end: 20140817
  2. METOCLOPRAMIDE HYDROCHLORIDE. [Concomitant]
     Active Substance: METOCLOPRAMIDE HYDROCHLORIDE
  3. IPRATROPIUM BROMIDE. [Concomitant]
     Active Substance: IPRATROPIUM BROMIDE
  4. BECLOMETHASONE [Concomitant]
     Active Substance: BECLOMETHASONE
  5. LORAZEPAM. [Concomitant]
     Active Substance: LORAZEPAM
  6. ENOXAPARIN SODIUM. [Concomitant]
     Active Substance: ENOXAPARIN SODIUM
  7. TRAZODONE [Concomitant]
     Active Substance: TRAZODONE HYDROCHLORIDE
  8. ACTIVATED CHARCOAL [Concomitant]
     Active Substance: ACTIVATED CHARCOAL
  9. METHYLPREDNISOLONE. [Concomitant]
     Active Substance: METHYLPREDNISOLONE
  10. SALBUTAMOL SULFATE [Concomitant]
     Active Substance: ALBUTEROL SULFATE
  11. SODIUM ACETATE. [Concomitant]
     Active Substance: SODIUM ACETATE
  12. LYSINE [Concomitant]
     Active Substance: LYSINE
  13. HUMAN ALBUMIN [Concomitant]
     Active Substance: ALBUMIN (HUMAN)
  14. SODIUM CHLORIDE. [Concomitant]
     Active Substance: SODIUM CHLORIDE
  15. CALCIUM CHLORIDE DIHYDRATE [Concomitant]
     Active Substance: CALCIUM CHLORIDE
  16. SUCRALFATE. [Concomitant]
     Active Substance: SUCRALFATE
  17. WATER FOR INJECTION [Concomitant]
     Active Substance: WATER
  18. CEFTRIAXONE SODIUM. [Concomitant]
     Active Substance: CEFTRIAXONE SODIUM
  19. PARACETAMOL [Concomitant]
     Active Substance: ACETAMINOPHEN
  20. SUCCINYLATED GELATIN [Concomitant]
     Active Substance: SUCCINYLATED GELATIN
  21. POTASSIUM CHLORIDE. [Concomitant]
     Active Substance: POTASSIUM CHLORIDE
  22. MAGNESIUM CHLORIDE HEXAHYDRATE [Concomitant]

REACTIONS (5)
  - Tonic clonic movements [None]
  - Seizure [None]
  - Drug interaction [None]
  - Tongue biting [None]
  - Loss of consciousness [None]
